FAERS Safety Report 5290436-1 (Version None)
Quarter: 2007Q2

REPORT INFORMATION
  Report Type: 
  Country: None (occurrence: None)
  Receive Date: 20070409
  Receipt Date: 20070330
  Transmission Date: 20071010
  Serious: Yes (Death)
  Sender: FDA-Public Use
  Company Number: PK-ABBOTT-07P-124-0363568-00

PATIENT
  Age: 2 Month
  Sex: Female

DRUGS (1)
  1. KLARICID I.V. [Suspect]
     Indication: PNEUMONIA
     Route: 042
     Dates: start: 20070324

REACTIONS (2)
  - HYPOXIA [None]
  - PNEUMONIA ASPIRATION [None]
